FAERS Safety Report 6580327-8 (Version None)
Quarter: 2010Q1

REPORT INFORMATION
  Report Type: 
  Country: None (occurrence: None)
  Receive Date: 20100212
  Receipt Date: 20091229
  Transmission Date: 20100710
  Serious: No
  Sender: FDA-Public Use
  Company Number: US-ALLERGAN-0916840US

PATIENT
  Age: 60 Year
  Weight: 68.027 kg

DRUGS (5)
  1. COMBIGAN [Suspect]
     Indication: INTRAOCULAR PRESSURE INCREASED
     Dosage: 1 GTT, BID
     Route: 047
     Dates: start: 20091206, end: 20091214
  2. METFORMIN HCL [Concomitant]
     Indication: DIABETES MELLITUS
     Dosage: 1000 MG, QD
     Route: 048
     Dates: start: 20060101
  3. CRESTOR [Concomitant]
     Indication: BLOOD CHOLESTEROL INCREASED
     Dosage: 5 MG, QOD
     Route: 048
     Dates: start: 20070101
  4. DIOVAN [Concomitant]
     Indication: HYPERTENSION
     Dosage: 32/10 MG QD
     Route: 048
     Dates: start: 20070101
  5. SYNTHROID [Concomitant]
     Indication: HYPOTHYROIDISM
     Dosage: 125 MG, QD
     Route: 048
     Dates: start: 20060101

REACTIONS (1)
  - VISION BLURRED [None]
